FAERS Safety Report 6405701-1 (Version None)
Quarter: 2009Q4

REPORT INFORMATION
  Report Type: 
  Country: None (occurrence: None)
  Receive Date: 20091014
  Receipt Date: 20090930
  Transmission Date: 20100525
  Serious: Yes (Hospitalization, Other)
  Sender: FDA-Public Use
  Company Number: 238445K09USA

PATIENT
  Age: 56 Year
  Sex: Female
  Weight: 76 kg

DRUGS (7)
  1. REBIF [Suspect]
     Indication: MULTIPLE SCLEROSIS
     Dosage: 44 MCG, 3 IN 1 WEEKS, SUBCUTANEOUS
     Route: 058
     Dates: start: 20050404
  2. ANTIDEPRESSANT (ANTIDEPRESSANTS) [Concomitant]
  3. TARGA (ALL OTHER THERAPEUTIC PRODUCTS) [Concomitant]
  4. ESTROGEN PATCH (ESTROGEN W/TESTOSTERONE) [Concomitant]
  5. WELLBUTRIN [Concomitant]
  6. PROVIGIL [Concomitant]
  7. XANAX [Concomitant]

REACTIONS (18)
  - ANAEMIA [None]
  - ASTHENIA [None]
  - CHEST DISCOMFORT [None]
  - CHEST PAIN [None]
  - COELIAC DISEASE [None]
  - DIABETES MELLITUS [None]
  - DYSPNOEA [None]
  - EJECTION FRACTION DECREASED [None]
  - EMBOLIC STROKE [None]
  - HEADACHE [None]
  - HEPATIC ENZYME INCREASED [None]
  - HYPOTHYROIDISM [None]
  - LIMB DISCOMFORT [None]
  - MYOCARDIAL INFARCTION [None]
  - NAUSEA [None]
  - PAIN IN JAW [None]
  - TRANSIENT ISCHAEMIC ATTACK [None]
  - VOMITING [None]
